FAERS Safety Report 5804896-8 (Version None)
Quarter: 2008Q3

REPORT INFORMATION
  Report Type: 
  Country: None (occurrence: None)
  Receive Date: 20080709
  Receipt Date: 20080628
  Transmission Date: 20090109
  Serious: Yes (Other)
  Sender: FDA-Public Use
  Company Number: US-PFIZER INC-2008036687

PATIENT
  Sex: Male

DRUGS (4)
  1. LYRICA [Suspect]
     Route: 048
     Dates: start: 20061106, end: 20061127
  2. VICODIN [Concomitant]
     Dosage: FREQ:AS NEEDED
  3. PARAFON FORTE [Concomitant]
     Dosage: FREQ:AS NEEDED
  4. NAPROXEN SODIUM [Concomitant]

REACTIONS (3)
  - OEDEMA PERIPHERAL [None]
  - PAIN [None]
  - WEIGHT INCREASED [None]
